FAERS Safety Report 15579586 (Version 1)
Quarter: 2018Q4

REPORT INFORMATION
  Report Type: Spontaneous
  Country: US (occurrence: US)
  Receive Date: 20181029
  Receipt Date: 20181029
  Transmission Date: 20190205
  Serious: No
  Sender: FDA-Public Use
  Company Number: None

PATIENT
  Age: 67 Year
  Sex: Male
  Weight: 63.5 kg

DRUGS (22)
  1. MULTI VITAMIN [Concomitant]
     Active Substance: VITAMINS
  2. VITAMIN B COMPLEX [Concomitant]
     Active Substance: CYANOCOBALAMIN\DEXPANTHENOL\NIACINAMIDE\PYRIDOXINE HYDROCHLORIDE\RIBOFLAVIN 5^-PHOSPHATE SODIUM\THIAMINE HYDROCHLORIDE\VITAMIN B COMPLEX
  3. MAGNESIUM [Concomitant]
     Active Substance: MAGNESIUM
  4. BIOMET SPINAL PAK-NON INVASIVE BONE GROWTH STIMULATOR [Concomitant]
  5. VITAMIN B12 [Concomitant]
     Active Substance: CYANOCOBALAMIN
  6. CALCIUM [Concomitant]
     Active Substance: CALCIUM
  7. SAW PALMETTO [Concomitant]
     Active Substance: HERBALS\SAW PALMETTO
  8. DOXYCYCLINE MONO 100MG CAP [Suspect]
     Active Substance: DOXYCYCLINE
     Indication: INFECTION PROPHYLAXIS
     Dosage: ?          QUANTITY:60 DF DOSAGE FORM;?
     Route: 048
     Dates: start: 20170826
  9. VTAMIN D [Concomitant]
  10. TUMERIC CURCUMIN [Concomitant]
  11. HYDROCO/APAP [Concomitant]
     Active Substance: ACETAMINOPHEN\HYDROCODONE
  12. DOXYCYCLINE MONO [Concomitant]
     Active Substance: DOXYCYCLINE
  13. NEURONTIN [Concomitant]
     Active Substance: GABAPENTIN
  14. NOVOLOG [Concomitant]
     Active Substance: INSULIN ASPART
  15. LEVEMIR [Concomitant]
     Active Substance: INSULIN DETEMIR
  16. ZINC COMPLEX [Concomitant]
  17. LEVOTHYROXINE. [Concomitant]
     Active Substance: LEVOTHYROXINE
  18. VITAMIN E [Concomitant]
     Active Substance: .ALPHA.-TOCOPHEROL
  19. VITAMIN A [Concomitant]
     Active Substance: VITAMIN A
  20. MILK THISTLE [Concomitant]
     Active Substance: DIETARY SUPPLEMENT\HERBALS\MILK THISTLE
  21. LACTULOSE. [Concomitant]
     Active Substance: LACTULOSE
  22. VITAMIN C [Concomitant]
     Active Substance: ASCORBIC ACID

REACTIONS (5)
  - Cataract [None]
  - Fungal infection [None]
  - Bone disorder [None]
  - Arthralgia [None]
  - Abdominal pain upper [None]

NARRATIVE: CASE EVENT DATE: 20180621
